FAERS Safety Report 8421086-3 (Version None)
Quarter: 2012Q2

REPORT INFORMATION
  Report Type: 
  Country: None (occurrence: None)
  Receive Date: 20120604
  Receipt Date: 20120604
  Transmission Date: 20120825
  Serious: Yes (Life-Threatening, Hospitalization)
  Sender: FDA-Public Use
  Company Number: None

PATIENT
  Sex: Female

DRUGS (3)
  1. PEGASYS [Suspect]
     Indication: HEPATITIS C
     Dosage: 180 MCG WEEKLY SQ
     Route: 058
  2. INCIVEK [Concomitant]
  3. RIBASPHERE [Suspect]
     Indication: HEPATITIS C
     Dosage: 600MG BID PO
     Route: 048

REACTIONS (4)
  - ANAEMIA [None]
  - THROMBOSIS [None]
  - STAPHYLOCOCCAL INFECTION [None]
  - LOCALISED INFECTION [None]
